FAERS Safety Report 9562468 (Version 1)
Quarter: 2013Q3

REPORT INFORMATION
  Report Type: Spontaneous
  Country: FR (occurrence: FR)
  Receive Date: 20130927
  Receipt Date: 20130927
  Transmission Date: 20140515
  Serious: Yes (Other)
  Sender: FDA-Public Use
  Company Number: FR-GLAXOSMITHKLINE-B0924786A

PATIENT
  Age: 66 Year
  Sex: Male

DRUGS (4)
  1. ZELITREX [Suspect]
     Indication: HERPES ZOSTER
     Route: 048
     Dates: start: 20130513
  2. ACICLOVIR [Suspect]
     Indication: HERPES ZOSTER
     Route: 061
     Dates: start: 20130513
  3. VOLTARENE [Suspect]
     Indication: PAIN
     Dosage: 75MG UNKNOWN
     Route: 048
     Dates: start: 20130513
  4. DERINOX [Suspect]
     Indication: NASAL OBSTRUCTION
     Route: 045
     Dates: start: 20130513

REACTIONS (2)
  - Urticaria [Recovering/Resolving]
  - Eyelid oedema [Recovering/Resolving]
